FAERS Safety Report 24706016 (Version 1)
Quarter: 2024Q4

REPORT INFORMATION
  Report Type: Spontaneous
  Country: US (occurrence: None)
  Receive Date: 20241205
  Receipt Date: 20241205
  Transmission Date: 20250115
  Serious: Yes (Hospitalization)
  Sender: Public
  Company Number: None

PATIENT
  Age: 9 Month
  Sex: Male

DRUGS (2)
  1. TRACLEER [Suspect]
     Active Substance: BOSENTAN
     Indication: Pulmonary hypertension
     Dosage: DOSE/FREQUENCY/ROUTE OF ADMISSION: DISSOLVE ONE-HALF TABLET (16 MG) IN 10 ML OF WATER, THEN MEASURE
     Route: 048
     Dates: start: 202409
  2. TRACLEER [Suspect]
     Active Substance: BOSENTAN
     Indication: Hypoxia

REACTIONS (1)
  - Pneumonia [None]

NARRATIVE: CASE EVENT DATE: 20241110
